FAERS Safety Report 16966777 (Version 1)
Quarter: 2019Q4

REPORT INFORMATION
  Report Type: Spontaneous
  Country: US (occurrence: US)
  Receive Date: 20190910
  Receipt Date: 20190910
  Transmission Date: 20200122
  Serious: Yes (Death)
  Sender: FDA-Public Use
  Company Number: None

PATIENT
  Age: 83 Year
  Sex: Female
  Weight: 49.44 kg

DRUGS (12)
  1. CAPECITABINE 500 MG [Suspect]
     Active Substance: CAPECITABINE
     Route: 048
  2. CAPECITABINE 500 MG [Suspect]
     Active Substance: CAPECITABINE
     Route: 048
  3. SM [Concomitant]
  4. CALTRATE [Concomitant]
     Active Substance: CALCIUM CARBONATE
  5. AMBIEN [Concomitant]
     Active Substance: ZOLPIDEM TARTRATE
  6. MULTIVITAMIN [Concomitant]
     Active Substance: VITAMINS
  7. XANAX [Concomitant]
     Active Substance: ALPRAZOLAM
  8. PROTONIX [Concomitant]
     Active Substance: PANTOPRAZOLE SODIUM
  9. LEVAPRO [Concomitant]
  10. ARIMIDEX [Concomitant]
     Active Substance: ANASTROZOLE
  11. SYNTHROID [Concomitant]
     Active Substance: LEVOTHYROXINE SODIUM
  12. CRESTOR [Concomitant]
     Active Substance: ROSUVASTATIN CALCIUM

REACTIONS (1)
  - Death [None]
